FAERS Safety Report 23630108 (Version 1)
Quarter: 2024Q1

REPORT INFORMATION
  Report Type: Spontaneous
  Country: BG (occurrence: BG)
  Receive Date: 20240314
  Receipt Date: 20240314
  Transmission Date: 20240410
  Serious: Yes (Other)
  Sender: FDA-Public Use
  Company Number: BG-009507513-2403BGR002913

PATIENT
  Age: 58 Year
  Sex: Male

DRUGS (1)
  1. KEYTRUDA [Suspect]
     Active Substance: PEMBROLIZUMAB
     Indication: Malignant melanoma
     Dosage: UNK
     Dates: start: 202303

REACTIONS (9)
  - Lymphoid tissue operation [Unknown]
  - Polyneuropathy [Unknown]
  - Hypoaesthesia [Unknown]
  - Pain in extremity [Unknown]
  - Sleep disorder [Unknown]
  - Back pain [Unknown]
  - Vertebral lesion [Unknown]
  - Hyperaesthesia [Unknown]
  - Hyporeflexia [Unknown]

NARRATIVE: CASE EVENT DATE: 20230901
